FAERS Safety Report 13569862 (Version 2)
Quarter: 2017Q2

REPORT INFORMATION
  Report Type: Spontaneous
  Country: US (occurrence: US)
  Receive Date: 20170522
  Receipt Date: 20170619
  Transmission Date: 20170830
  Serious: No
  Sender: FDA-Public Use
  Company Number: US-SUNOVION-2017SUN002079

PATIENT
  Age: 49 Year
  Sex: Female
  Weight: 56.69 kg

DRUGS (2)
  1. LATUDA [Suspect]
     Active Substance: LURASIDONE HYDROCHLORIDE
     Dosage: 40 UNK, UNK
     Route: 048
     Dates: start: 20170530
  2. LATUDA [Suspect]
     Active Substance: LURASIDONE HYDROCHLORIDE
     Indication: BIPOLAR I DISORDER
     Dosage: 40 MG, UNK
     Route: 048
     Dates: start: 201611, end: 201704

REACTIONS (6)
  - Sleep disorder [Not Recovered/Not Resolved]
  - Aggression [Unknown]
  - Crying [Not Recovered/Not Resolved]
  - Weight decreased [Recovered/Resolved]
  - Agitation [Recovered/Resolved]
  - Mood swings [Not Recovered/Not Resolved]

NARRATIVE: CASE EVENT DATE: 201704
